FAERS Safety Report 5096946-4 (Version None)
Quarter: 2006Q3

REPORT INFORMATION
  Report Type: 
  Country: None (occurrence: None)
  Receive Date: 20060831
  Receipt Date: 20060814
  Transmission Date: 20061208
  Serious: Yes (Hospitalization)
  Sender: FDA-Public Use
  Company Number: 2006HD000001

PATIENT
  Sex: Male
  Weight: 91.6266 kg

DRUGS (7)
  1. INFERGEN [Suspect]
     Indication: HEPATITIS C
     Dosage: 15 MCG QD SUBCUTANEOUS
     Route: 058
     Dates: start: 20060420, end: 20060811
  2. INFERGEN [Suspect]
     Indication: HEPATITIS C
     Dosage: 9 MCG QD SUBCUTANEOUS
     Route: 058
     Dates: start: 20060420, end: 20060811
  3. CODEINE [Concomitant]
  4. ALBUTEROL [Concomitant]
  5. PROCRIT [Concomitant]
  6. FOLATE [Concomitant]
  7. IRON [Concomitant]

REACTIONS (5)
  - ANAEMIA [None]
  - CELLULITIS [None]
  - CONSTIPATION [None]
  - FLUID RETENTION [None]
  - INJECTION SITE PAIN [None]
